FAERS Safety Report 7939952-1 (Version None)
Quarter: 2011Q4

REPORT INFORMATION
  Report Type: 
  Country: None (occurrence: None)
  Receive Date: 20111125
  Receipt Date: 20111117
  Transmission Date: 20120403
  Serious: Yes (Other)
  Sender: FDA-Public Use
  Company Number: PHHY2011DE102727

PATIENT
  Age: 30 Year
  Sex: Female
  Weight: 50 kg

DRUGS (3)
  1. ACETAMINOPHEN [Concomitant]
     Indication: HEADACHE
     Dosage: 500 MG
  2. FOLIC ACID [Concomitant]
     Indication: PROPHYLAXIS OF NEURAL TUBE DEFECT
     Dosage: 0.4 MG
  3. BROMOCRIPTINE MESYLATE [Suspect]
     Indication: PROLACTINOMA
     Dosage: 2.5 MG
     Dates: end: 20110502

REACTIONS (2)
  - MATERNAL EXPOSURE DURING PREGNANCY [None]
  - PREMATURE DELIVERY [None]
